FAERS Safety Report 5245904-5 (Version None)
Quarter: 2007Q1

REPORT INFORMATION
  Report Type: 
  Country: None (occurrence: None)
  Receive Date: 20070221
  Receipt Date: 20070205
  Transmission Date: 20070707
  Serious: Yes (Other)
  Sender: FDA-Public Use
  Company Number: 236065

PATIENT
  Age: 72 Year
  Sex: Female

DRUGS (1)
  1. RAPTIVA [Suspect]
     Indication: PSORIASIS
     Dosage: 1 UNK, 1/WEEK, SUBCUTANEOUS
     Route: 058
     Dates: start: 20060711, end: 20070129

REACTIONS (2)
  - LUPUS-LIKE SYNDROME [None]
  - RHEUMATOID FACTOR INCREASED [None]
